FAERS Safety Report 12738663 (Version 1)
Quarter: 2016Q3

REPORT INFORMATION
  Report Type: Spontaneous
  Country: CN (occurrence: CN)
  Receive Date: 20160913
  Receipt Date: 20160913
  Transmission Date: 20161109
  Serious: Yes (Other)
  Sender: FDA-Public Use
  Company Number: CN-ASTRAZENECA-2016SE96141

PATIENT
  Age: 11688 Day
  Sex: Female
  Weight: 32 kg

DRUGS (8)
  1. FURAZOLIDONE [Concomitant]
     Active Substance: FURAZOLIDONE
     Indication: GASTRITIS
     Route: 048
     Dates: start: 20160223, end: 20160306
  2. ETHINYLESTRADIOL AND CYPROTERONE ACETATE [Concomitant]
     Indication: CONTRACEPTION
     Route: 048
     Dates: start: 20160217, end: 20160308
  3. KLACID [Concomitant]
     Active Substance: CLARITHROMYCIN
     Indication: GASTRITIS
     Route: 048
     Dates: start: 20160223, end: 20160229
  4. NEXIUM [Suspect]
     Active Substance: ESOMEPRAZOLE MAGNESIUM
     Indication: GASTRITIS
     Route: 048
     Dates: start: 20160301, end: 20160306
  5. KLACID [Concomitant]
     Active Substance: CLARITHROMYCIN
     Indication: GASTRITIS
     Route: 041
     Dates: start: 20160301, end: 20160306
  6. TETRACYCLINE [Concomitant]
     Active Substance: TETRACYCLINE
     Indication: GASTRITIS
     Route: 048
     Dates: start: 20160223, end: 20160306
  7. PANTOPRAZOLE SODIUM. [Concomitant]
     Active Substance: PANTOPRAZOLE SODIUM
     Indication: GASTRITIS
     Route: 048
     Dates: start: 20160223, end: 20160229
  8. ORNIDAZOLE [Concomitant]
     Active Substance: ORNIDAZOLE
     Indication: GASTRITIS
     Route: 048
     Dates: start: 20160223, end: 20160306

REACTIONS (6)
  - Arthralgia [Not Recovered/Not Resolved]
  - Myalgia [Not Recovered/Not Resolved]
  - Peripheral swelling [Not Recovered/Not Resolved]
  - Blood creatine phosphokinase increased [Not Recovered/Not Resolved]
  - Asthenia [Not Recovered/Not Resolved]
  - Nausea [Not Recovered/Not Resolved]

NARRATIVE: CASE EVENT DATE: 20160303
